FAERS Safety Report 8675714 (Version 2)
Quarter: 2013Q4

REPORT INFORMATION
  Report Type: Spontaneous
  Country: US (occurrence: US)
  Receive Date: 20120720
  Receipt Date: 20131101
  Transmission Date: 20140711
  Serious: No
  Sender: FDA-Public Use
  Company Number: US-009507513-1207USA000415

PATIENT
  Age: 72 Year
  Sex: Male

DRUGS (1)
  1. HYZAAR [Suspect]
     Indication: HYPERTENSION
     Route: 048

REACTIONS (3)
  - Headache [Not Recovered/Not Resolved]
  - Herpes zoster [Not Recovered/Not Resolved]
  - Post herpetic neuralgia [Not Recovered/Not Resolved]
